FAERS Safety Report 8814539 (Version 3)
Quarter: 2012Q4

REPORT INFORMATION
  Report Type: 
  Country: DE (occurrence: DE)
  Receive Date: 20120928
  Receipt Date: 20121019
  Transmission Date: 20130627
  Serious: Yes (Death, Hospitalization)
  Sender: FDA-Public Use
  Company Number: PHHY2012DE083923

PATIENT
  Sex: Male
  Weight: 71 kg

DRUGS (2)
  1. ICL670A [Suspect]
     Indication: IRON OVERLOAD
     Dosage: UNK UKN, UNK
     Route: 048
  2. AZACITIDINE [Suspect]
     Indication: MYELODYSPLASTIC SYNDROME
     Dosage: 100 mg, per day
     Route: 058
     Dates: start: 20111004, end: 20120720

REACTIONS (6)
  - Cardiac failure [Fatal]
  - Pneumonia [Fatal]
  - Acute myocardial infarction [Fatal]
  - Urinary retention [Recovering/Resolving]
  - Weight decreased [Unknown]
  - General physical health deterioration [Unknown]
